FAERS Safety Report 8824581 (Version 1)
Quarter: 2012Q4

REPORT INFORMATION
  Report Type: 
  Country: US (occurrence: US)
  Receive Date: 20121004
  Receipt Date: 20121004
  Transmission Date: 20130627
  Serious: Yes (Life-Threatening, Hospitalization, Other)
  Sender: FDA-Public Use
  Company Number: US-MERCK-1210USA000766

PATIENT
  Age: 51 Year
  Sex: Male

DRUGS (10)
  1. ASMANEX TWISTHALER [Suspect]
     Indication: ASTHMA
     Dosage: 1 DF, bid
     Route: 055
  2. PROVENTIL [Suspect]
  3. SYMBICORT [Suspect]
  4. SPIRIVA [Suspect]
  5. BUPROPION HYDROCHLORIDE [Concomitant]
  6. LORATADINE [Concomitant]
  7. MONTELUKAST SODIUM [Concomitant]
  8. PREDNISONE [Concomitant]
  9. CLINDAMYCIN [Concomitant]
  10. PERCOCET [Concomitant]

REACTIONS (1)
  - Asthma [Recovered/Resolved]
